FAERS Safety Report 7392253-5 (Version None)
Quarter: 2011Q2

REPORT INFORMATION
  Report Type: 
  Country: None (occurrence: None)
  Receive Date: 20110404
  Receipt Date: 20110331
  Transmission Date: 20111010
  Serious: Yes (Other)
  Sender: FDA-Public Use
  Company Number: US-MERCK-1103USA04005

PATIENT
  Age: 81 Year
  Sex: Female

DRUGS (3)
  1. COZAAR [Suspect]
     Route: 048
  2. ATENOLOL [Concomitant]
     Route: 065
  3. CARDIZEM [Concomitant]
     Route: 065

REACTIONS (3)
  - FALL [None]
  - WEIGHT INCREASED [None]
  - HIP FRACTURE [None]
